FAERS Safety Report 5604498-2 (Version None)
Quarter: 2008Q1

REPORT INFORMATION
  Report Type: 
  Country: None (occurrence: None)
  Receive Date: 20080128
  Receipt Date: 20080122
  Transmission Date: 20080703
  Serious: Yes (Life-Threatening, Hospitalization)
  Sender: FDA-Public Use
  Company Number: JP-BRISTOL-MYERS SQUIBB COMPANY-14054753

PATIENT
  Sex: Male

DRUGS (1)
  1. KENACORT [Suspect]
     Indication: SEASONAL ALLERGY
     Dosage: FIRST DOSE: 28-MAR-2005 ; SECOND DOSE:09-APR-2005
     Route: 030
     Dates: start: 20050409, end: 20050409

REACTIONS (2)
  - CEREBRAL INFARCTION [None]
  - CHORIORETINOPATHY [None]
